FAERS Safety Report 21992030 (Version 8)
Quarter: 2024Q2

REPORT INFORMATION
  Report Type: Report from Study
  Country: JP (occurrence: JP)
  Receive Date: 20230214
  Receipt Date: 20240411
  Transmission Date: 20240715
  Serious: Yes (Death, Hospitalization, Other)
  Sender: FDA-Public Use
  Company Number: JP-TAKEDA-2023TJP001931

PATIENT
  Age: 73 Year
  Sex: Male

DRUGS (13)
  1. LEUPROLIDE ACETATE [Suspect]
     Active Substance: ISOPROPYL ALCOHOL\LEUPROLIDE ACETATE
     Indication: Bulbospinal muscular atrophy congenital
     Dosage: 11.25 MILLIGRAM, Q3MONTHS
     Route: 058
     Dates: start: 20220224, end: 20230202
  2. KETOPROFEN [Concomitant]
     Active Substance: KETOPROFEN
     Indication: Myalgia
     Dosage: 40 MILLIGRAM, QD
     Route: 065
     Dates: start: 20220310, end: 20220407
  3. LEVOFLOXACIN [Concomitant]
     Active Substance: LEVOFLOXACIN
     Indication: Pneumonia
     Dosage: 500 MILLIGRAM
     Route: 065
     Dates: start: 20220915, end: 20220921
  4. JANUVIA [Concomitant]
     Active Substance: SITAGLIPTIN PHOSPHATE
     Indication: Product used for unknown indication
     Dosage: 50 MILLIGRAM, QD
     Route: 048
     Dates: end: 20221110
  5. MAGNESIUM OXIDE [Concomitant]
     Active Substance: MAGNESIUM OXIDE
     Indication: Constipation
     Dosage: 200 MILLIGRAM, BID
     Route: 048
     Dates: start: 20221013, end: 20230125
  6. LANSOPRAZOLE [Concomitant]
     Active Substance: LANSOPRAZOLE
     Indication: Product used for unknown indication
     Dosage: 15 MILLIGRAM, QD
     Route: 048
     Dates: start: 20221124
  7. ENALAPRIL MALEATE [Concomitant]
     Active Substance: ENALAPRIL MALEATE
     Indication: Prophylaxis
     Dosage: 7.5 MILLIGRAM, QD
     Route: 048
     Dates: end: 20230202
  8. THEOPHYLLINE ANHYDROUS [Concomitant]
     Active Substance: THEOPHYLLINE ANHYDROUS
     Indication: Bronchitis
     Dosage: MILLIGRAM, QD
     Route: 048
     Dates: start: 20220602, end: 20230125
  9. LOXOPROFEN [Concomitant]
     Active Substance: LOXOPROFEN
     Indication: Back pain
     Dosage: TIME INTERVAL: 0.33333333 DAYS: 60 MILLIGRAM, TID
     Route: 048
     Dates: start: 20220310, end: 20220509
  10. CYANOCOBALAMIN [Concomitant]
     Active Substance: CYANOCOBALAMIN
     Indication: Asthenopia
     Dosage: UNK
     Route: 047
     Dates: start: 20220210, end: 20220602
  11. AMBROXOL HYDROCHLORIDE [Concomitant]
     Active Substance: AMBROXOL HYDROCHLORIDE
     Indication: Bronchitis
     Dosage: 45 MILLIGRAM, QD
     Route: 048
     Dates: start: 20220127, end: 20220210
  12. TULOBUTEROL [Concomitant]
     Active Substance: TULOBUTEROL
     Indication: Bronchitis
     Dosage: 2 MILLIGRAM, QD
     Route: 065
     Dates: start: 20220407, end: 20220606
  13. ACETAMINOPHEN [Concomitant]
     Active Substance: ACETAMINOPHEN
     Indication: Product used for unknown indication
     Dosage: 500 MILLIGRAM
     Route: 065
     Dates: start: 20220915, end: 20220921

REACTIONS (2)
  - Pneumonia [Fatal]
  - Bulbospinal muscular atrophy congenital [Fatal]

NARRATIVE: CASE EVENT DATE: 20230202
